FAERS Safety Report 19597141 (Version 1)
Quarter: 2021Q3

REPORT INFORMATION
  Report Type: Spontaneous
  Country: RU (occurrence: RU)
  Receive Date: 20210723
  Receipt Date: 20210723
  Transmission Date: 20211014
  Serious: Yes (Other)
  Sender: FDA-Public Use
  Company Number: RU-ORION CORPORATION ORION PHARMA-ENTC2021-0176

PATIENT
  Age: 66 Year
  Sex: Female
  Weight: 107 kg

DRUGS (2)
  1. STALEVO [Suspect]
     Active Substance: CARBIDOPA\ENTACAPONE\LEVODOPA
     Indication: PARKINSON^S DISEASE
     Dosage: STRENGTH: 100/25/200 MG ?STARTED IN JANUARY?FEBRUARY 2019
     Route: 048
     Dates: start: 2019, end: 201902
  2. MADOPAR [Concomitant]
     Active Substance: BENSERAZIDE HYDROCHLORIDE\LEVODOPA
     Indication: PARKINSON^S DISEASE
     Dosage: STRENGTH: 200/50 MG?STARTED: SINCE 2018
     Route: 048
     Dates: start: 2018

REACTIONS (4)
  - Dyskinesia [Recovering/Resolving]
  - Seizure [Recovering/Resolving]
  - Aphasia [Recovering/Resolving]
  - Drug ineffective [Recovering/Resolving]
